FAERS Safety Report 4801833-X (Version None)
Quarter: 2005Q3

REPORT INFORMATION
  Report Type: 
  Country: None (occurrence: None)
  Receive Date: 20050929
  Receipt Date: 20050607
  Transmission Date: 20060218
  Serious: Yes (Hospitalization)
  Sender: FDA-Public Use
  Company Number: 05P-163-0302474-00

PATIENT
  Age: 75 Year
  Sex: Female
  Weight: 68.0396 kg

DRUGS (5)
  1. HUMIRA [Suspect]
     Indication: RHEUMATOID ARTHRITIS
     Dosage: 40 MG, SUBCUTANEOUS
     Route: 058
     Dates: start: 20020101, end: 20050401
  2. HEART MEDICINE [Concomitant]
  3. ASPIRIN [Concomitant]
  4. WATER PILL [Concomitant]
  5. ANTIBIOTICS [Concomitant]

REACTIONS (4)
  - CHEST PAIN [None]
  - DYSPNOEA [None]
  - KIDNEY INFECTION [None]
  - LOWER RESPIRATORY TRACT INFECTION [None]
